FAERS Safety Report 5652116-X (Version None)
Quarter: 2008Q1

REPORT INFORMATION
  Report Type: 
  Country: None (occurrence: None)
  Receive Date: 20080304
  Receipt Date: 20080219
  Transmission Date: 20080703
  Serious: Yes (Death, Other)
  Sender: FDA-Public Use
  Company Number: 2008000369

PATIENT
  Age: 65 Year
  Sex: Male

DRUGS (6)
  1. ERLOTINIB (ERLOTINIB HC1) (TABLET) (ERLOTINIB HC1) [Suspect]
     Dosage: 160 MG, QD, ORAL
     Route: 048
     Dates: start: 20080107
  2. RABEPRAZOLE SODIUM [Concomitant]
  3. ALLOPURINOL [Concomitant]
  4. TEGRETOL [Concomitant]
  5. METHYCOBAL (MECOBALAMIN) [Concomitant]
  6. OXYCONTIN [Concomitant]

REACTIONS (2)
  - DISEASE PROGRESSION [None]
  - HYPERKALAEMIA [None]
